FAERS Safety Report 15368162 (Version 4)
Quarter: 2018Q4

REPORT INFORMATION
  Report Type: Spontaneous
  Country: IT (occurrence: IT)
  Receive Date: 20180910
  Receipt Date: 20181009
  Transmission Date: 20190204
  Serious: Yes (Hospitalization)
  Sender: FDA-Public Use
  Company Number: IT-ALLERGAN-1843456US

PATIENT
  Age: 6 Year
  Sex: Male

DRUGS (1)
  1. ATROPINE SULFATE 1.0% SOL (0015B) [Suspect]
     Active Substance: ATROPINE SULFATE
     Indication: EYE DISORDER
     Dosage: 2 GTT, BID
     Route: 047
     Dates: start: 20180724, end: 20180725

REACTIONS (2)
  - Pruritus [Recovering/Resolving]
  - Flushing [Recovering/Resolving]

NARRATIVE: CASE EVENT DATE: 20180724
